FAERS Safety Report 10100448 (Version 1)
Quarter: 2014Q2

REPORT INFORMATION
  Report Type: Report from Study
  Country: US (occurrence: US)
  Receive Date: 20140423
  Receipt Date: 20140423
  Transmission Date: 20141212
  Serious: Yes (Hospitalization)
  Sender: FDA-Public Use
  Company Number: PHEH2014US007882

PATIENT
  Age: 46 Year
  Sex: Female
  Weight: 63.5 kg

DRUGS (6)
  1. TOBI PODHALER [Suspect]
     Indication: CYSTIC FIBROSIS
     Dosage: 112 MG, BID
     Route: 055
     Dates: start: 201311, end: 201312
  2. ADVAIR [Concomitant]
     Dosage: UNK
  3. ALBUTEROL [Concomitant]
     Dosage: UNK
  4. ATROVENT [Concomitant]
     Dosage: UNK
  5. CIPRO//CIPROFLOXACIN [Concomitant]
     Dosage: UNK
  6. ZITHROMAX [Concomitant]
     Dosage: UNK

REACTIONS (2)
  - Vestibular disorder [Unknown]
  - Weight decreased [Unknown]
